FAERS Safety Report 5216921-6 (Version None)
Quarter: 2007Q1

REPORT INFORMATION
  Report Type: 
  Country: None (occurrence: None)
  Receive Date: 20070119
  Receipt Date: 20070109
  Transmission Date: 20070707
  Serious: Yes (Death)
  Sender: FDA-Public Use
  Company Number: E2020-00846-SPO-JP

PATIENT
  Age: 78 Year
  Sex: Male
  Weight: 56.35 kg

DRUGS (10)
  1. ARICEPT [Suspect]
     Indication: DEMENTIA ALZHEIMER'S TYPE
     Dosage: 1.5 MG, 1 IN 1 D, ORAL
     Route: 048
     Dates: start: 20061107, end: 20061110
  2. MEXITIL [Concomitant]
  3. DIART (AZOSEMIDE) [Concomitant]
  4. FLUITRAN (TRICHLORMETHIAZIDE) [Concomitant]
  5. ASPIRIN [Concomitant]
  6. LANIRAPID (METILDIGOXIN) [Concomitant]
  7. LANSOPRAZOLE [Concomitant]
  8. PAXIL [Concomitant]
  9. GRAMALIL (TIAPRIDE HYDROCHLORIDE) [Concomitant]
  10. MIYA BM (MIYARI BACTERIA) [Concomitant]

REACTIONS (1)
  - CARDIAC FAILURE [None]
